FAERS Safety Report 21986588 (Version 1)
Quarter: 2023Q1

REPORT INFORMATION
  Report Type: Spontaneous
  Country: US (occurrence: US)
  Receive Date: 20230213
  Receipt Date: 20230213
  Transmission Date: 20230418
  Serious: No
  Sender: FDA-Public Use
  Company Number: US-ALLERGAN-2300389US

PATIENT
  Age: 71 Year
  Sex: Female

DRUGS (1)
  1. VUITY [Suspect]
     Active Substance: PILOCARPINE HYDROCHLORIDE
     Indication: Visual impairment
     Dosage: ONE TO TWO DROPS PER EYE
     Route: 047
     Dates: start: 202212, end: 20230101

REACTIONS (4)
  - Ocular hyperaemia [Recovered/Resolved]
  - Off label use [Unknown]
  - Drug ineffective [Unknown]
  - Eye irritation [Recovered/Resolved]

NARRATIVE: CASE EVENT DATE: 20221201
